FAERS Safety Report 18914639 (Version 1)
Quarter: 2021Q1

REPORT INFORMATION
  Report Type: Spontaneous
  Country: US (occurrence: US)
  Receive Date: 20210218
  Receipt Date: 20210218
  Transmission Date: 20210420
  Serious: No
  Sender: FDA-Public Use
  Company Number: US-BIOMARINAP-US-2021-134892

PATIENT
  Sex: Male

DRUGS (3)
  1. PALYNZIQ [Suspect]
     Active Substance: PEGVALIASE-PQPZ
     Indication: PHENYLKETONURIA
     Route: 058
  2. PEPCID [Concomitant]
     Active Substance: FAMOTIDINE
     Indication: PRODUCT USED FOR UNKNOWN INDICATION
  3. ZYRTEC [Concomitant]
     Active Substance: CETIRIZINE HYDROCHLORIDE
     Indication: PRODUCT USED FOR UNKNOWN INDICATION

REACTIONS (10)
  - Lip erythema [Unknown]
  - Headache [Unknown]
  - Arthralgia [Unknown]
  - Abdominal pain upper [Unknown]
  - Hypoaesthesia oral [Unknown]
  - Influenza like illness [Unknown]
  - Injection site rash [Unknown]
  - Disturbance in attention [Unknown]
  - Fatigue [Unknown]
  - Back pain [Unknown]
